FAERS Safety Report 12551406 (Version 2)
Quarter: 2016Q4

REPORT INFORMATION
  Report Type: Spontaneous
  Country: US (occurrence: US)
  Receive Date: 20160713
  Receipt Date: 20161012
  Transmission Date: 20170207
  Serious: No
  Sender: FDA-Public Use
  Company Number: US-TEVA-657733USA

PATIENT
  Sex: Female

DRUGS (1)
  1. ZECUITY [Suspect]
     Active Substance: SUMATRIPTAN SUCCINATE
     Indication: MIGRAINE
     Dosage: 6.5 MG OVER 4 HOURS
     Route: 062
     Dates: start: 20160412

REACTIONS (6)
  - Product adhesion issue [Unknown]
  - Circumstance or information capable of leading to medication error [Unknown]
  - Application site erythema [Recovered/Resolved]
  - Application site bruise [Recovered/Resolved]
  - Application site pruritus [Recovered/Resolved]
  - Product leakage [Unknown]
